FAERS Safety Report 7296650-8 (Version None)
Quarter: 2011Q1

REPORT INFORMATION
  Report Type: 
  Country: None (occurrence: None)
  Receive Date: 20110216
  Receipt Date: 20110211
  Transmission Date: 20110831
  Serious: Yes (Death)
  Sender: FDA-Public Use
  Company Number: PHHO2011FR02872

PATIENT
  Sex: Male

DRUGS (1)
  1. STI571/CGP57148B [Suspect]
     Indication: ACUTE LYMPHOCYTIC LEUKAEMIA
     Dosage: UNK
     Route: 048

REACTIONS (1)
  - DEATH [None]
